FAERS Safety Report 7559865-7 (Version None)
Quarter: 2011Q2

REPORT INFORMATION
  Report Type: 
  Country: None (occurrence: None)
  Receive Date: 20110617
  Receipt Date: 20110617
  Transmission Date: 20111010
  Serious: Yes (Other)
  Sender: FDA-Public Use
  Company Number: None

PATIENT
  Age: 68 Year
  Sex: Female
  Weight: 71.6683 kg

DRUGS (1)
  1. PAXIL CR [Suspect]
     Indication: PANIC DISORDER
     Dosage: 1 PER DAY
     Dates: start: 20050910, end: 20110314

REACTIONS (6)
  - DYSGEUSIA [None]
  - INFLUENZA LIKE ILLNESS [None]
  - FATIGUE [None]
  - PARAESTHESIA ORAL [None]
  - DRUG WITHDRAWAL SYNDROME [None]
  - NAUSEA [None]
